FAERS Safety Report 11058677 (Version 1)
Quarter: 2015Q2

REPORT INFORMATION
  Report Type: Report from Study
  Country: US (occurrence: None)
  Receive Date: 20150420
  Receipt Date: 20150420
  Transmission Date: 20150821
  Serious: No
  Sender: FDA-Public Use
  Company Number: AEGR001060

PATIENT
  Age: 54 Year
  Sex: Male
  Weight: 85.3 kg

DRUGS (11)
  1. TRILIPIX [Concomitant]
     Active Substance: FENOFIBRIC ACID
  2. LOVAZA (OMEGA-3-ACID ETHYL ESTER ) [Concomitant]
  3. CARVEDILOL. [Concomitant]
     Active Substance: CARVEDILOL
  4. PANTOPRAZOLE (PANTOPRAZOLE SODIUM SESQUIHYDRATE) [Concomitant]
  5. LOSARTAN [Concomitant]
     Active Substance: LOSARTAN
  6. CRESTOR (ROSVASTATIN CALCIUM) [Concomitant]
  7. BABY ASPIRIN (ACETYLASALICYLIC ACID) [Concomitant]
  8. JUXTAPID [Suspect]
     Active Substance: LOMITAPIDE MESYLATE
     Indication: TYPE IIA HYPERLIPIDAEMIA
     Dosage: 10 MG, QD, ORAL
     Route: 048
     Dates: end: 20141029
  9. PLAVIX (CLOPIDOGREL BISULFATE) [Concomitant]
  10. RANEXA (RANOLAZINE) [Concomitant]
  11. WELCHOL (COLESEVELAM HYDROCHLORIDE) [Concomitant]

REACTIONS (1)
  - Abdominal discomfort [None]

NARRATIVE: CASE EVENT DATE: 2014
